FAERS Safety Report 26009563 (Version 1)
Quarter: 2025Q4

REPORT INFORMATION
  Report Type: Spontaneous
  Country: US (occurrence: US)
  Receive Date: 20251107
  Receipt Date: 20251107
  Transmission Date: 20260118
  Serious: Yes (Life-Threatening, Hospitalization, Other)
  Sender: DR REDDYS
  Company Number: US-DRL-USA-USA/2025/10/016493

PATIENT
  Age: 11 Year
  Sex: Male

DRUGS (5)
  1. CLONIDINE [Suspect]
     Active Substance: CLONIDINE
     Indication: Attention deficit hyperactivity disorder
  2. CLONIDINE [Suspect]
     Active Substance: CLONIDINE
     Dosage: BASELINE DOSING
  3. GUANFACINE [Suspect]
     Active Substance: GUANFACINE
     Indication: Attention deficit hyperactivity disorder
  4. GUANFACINE [Suspect]
     Active Substance: GUANFACINE
     Dosage: BASELINE DOSING
  5. LISDEXAMFETAMINE [Concomitant]
     Active Substance: LISDEXAMFETAMINE
     Indication: Attention deficit hyperactivity disorder

REACTIONS (5)
  - Hypertensive urgency [Recovering/Resolving]
  - Withdrawal syndrome [Unknown]
  - Product dose omission issue [Unknown]
  - Product use in unapproved indication [Unknown]
  - Nausea [Unknown]
